FAERS Safety Report 17480745 (Version 1)
Quarter: 2020Q1

REPORT INFORMATION
  Report Type: Report from Study
  Country: None (occurrence: US)
  Receive Date: 20200301
  Receipt Date: 20200301
  Transmission Date: 20200409
  Serious: Yes (Other)
  Sender: FDA-Public Use
  Company Number: US-ABBVIE-20K-163-3284972-00

PATIENT
  Sex: Male

DRUGS (2)
  1. HUMIRA [Suspect]
     Active Substance: ADALIMUMAB
     Indication: PSORIASIS
  2. HUMIRA [Suspect]
     Active Substance: ADALIMUMAB
     Indication: PSORIATIC ARTHROPATHY
     Route: 058
     Dates: start: 2017, end: 201912

REACTIONS (5)
  - Anaemia [Recovered/Resolved]
  - Psoriasis [Not Recovered/Not Resolved]
  - Peripheral artery occlusion [Recovered/Resolved]
  - Haemorrhage [Recovered/Resolved]
  - Stent placement [Recovered/Resolved]
